FAERS Safety Report 6794538-X (Version None)
Quarter: 2010Q2

REPORT INFORMATION
  Report Type: 
  Country: None (occurrence: None)
  Receive Date: 20100625
  Receipt Date: 20100308
  Transmission Date: 20101027
  Serious: No
  Sender: FDA-Public Use
  Company Number: A0850736A

PATIENT
  Age: 10 Year
  Sex: Female

DRUGS (2)
  1. VENTOLIN [Suspect]
     Indication: DRUG USE FOR UNKNOWN INDICATION
     Route: 065
  2. ALBUTEROL SULFATE [Suspect]
     Indication: DRUG USE FOR UNKNOWN INDICATION
     Route: 065

REACTIONS (2)
  - COUGH [None]
  - HYPERSENSITIVITY [None]
